FAERS Safety Report 6113734-8 (Version None)
Quarter: 2009Q1

REPORT INFORMATION
  Report Type: 
  Country: None (occurrence: None)
  Receive Date: 20090312
  Receipt Date: 20090303
  Transmission Date: 20090719
  Serious: Yes (Other)
  Sender: FDA-Public Use
  Company Number: US-TYCO HEALTHCARE/MALLINCKRODT-T200900597

PATIENT
  Sex: Female

DRUGS (1)
  1. OPTIRAY 300 [Suspect]
     Indication: COMPUTERISED TOMOGRAM THORAX
     Dosage: 100 ML, SINGLE
     Route: 042
     Dates: start: 20090205, end: 20090205

REACTIONS (3)
  - DYSPNOEA [None]
  - FLUSHING [None]
  - HEART RATE DECREASED [None]
